FAERS Safety Report 5146265-2 (Version None)
Quarter: 2006Q4

REPORT INFORMATION
  Report Type: 
  Country: None (occurrence: None)
  Receive Date: 20061108
  Receipt Date: 20061016
  Transmission Date: 20070319
  Serious: Yes (Other)
  Sender: FDA-Public Use
  Company Number: NO-ELI_LILLY_AND_COMPANY-NO200610003229

PATIENT
  Age: 64 Year
  Sex: Male

DRUGS (7)
  1. CYMBALTA [Suspect]
     Indication: BIPOLAR DISORDER
     Dosage: 60 MG, DAILY (1/D)
     Route: 048
     Dates: start: 20060411
  2. CYMBALTA [Interacting]
     Dosage: 30 MG, DAILY (1/D)
     Route: 048
  3. ATARAX [Concomitant]
  4. SEROQUEL [Interacting]
     Indication: BIPOLAR DISORDER
     Dosage: 300 MG, DAILY (1/D)
     Route: 048
     Dates: start: 20060320
  5. SEROQUEL [Interacting]
     Dosage: 100 MG, DAILY (1/D)
     Route: 048
  6. VALLERGAN [Concomitant]
  7. LAMOTRIGINE [Concomitant]
     Indication: PROSTATE CANCER
     Dosage: UNK, UNKNOWN
     Route: 065

REACTIONS (5)
  - AKATHISIA [None]
  - DEPRESSION [None]
  - DRUG INTERACTION [None]
  - DYSKINESIA [None]
  - MUSCULOSKELETAL STIFFNESS [None]
